FAERS Safety Report 7533589-4 (Version None)
Quarter: 2011Q2

REPORT INFORMATION
  Report Type: 
  Country: None (occurrence: None)
  Receive Date: 20110608
  Receipt Date: 20060216
  Transmission Date: 20111010
  Serious: Yes (Other)
  Sender: FDA-Public Use
  Company Number: PHHO2006NZ02860

PATIENT
  Sex: Male

DRUGS (5)
  1. RISPERIDONE [Concomitant]
     Dosage: 3 MG, QD
     Route: 048
  2. ZOPICLONE [Concomitant]
     Dosage: 7.5 MG/PM
     Route: 048
  3. CLOZARIL [Suspect]
     Route: 048
     Dates: start: 20060216
  4. CLOZARIL [Suspect]
     Indication: SCHIZOPHRENIA
     Route: 048
     Dates: start: 20040816, end: 20060207
  5. CLOZARIL [Suspect]
     Dosage: NO TREATMENT
     Dates: start: 20060208, end: 20060215

REACTIONS (2)
  - SUICIDE ATTEMPT [None]
  - INTENTIONAL OVERDOSE [None]
